FAERS Safety Report 21902292 (Version 1)
Quarter: 2023Q1

REPORT INFORMATION
  Report Type: Spontaneous
  Country: NO (occurrence: NO)
  Receive Date: 20230124
  Receipt Date: 20230124
  Transmission Date: 20230418
  Serious: No
  Sender: FDA-Public Use
  Company Number: NO-ALKEM LABORATORIES LIMITED-NO-ALKEM-2022-14190

PATIENT
  Age: 32 Year
  Sex: Female

DRUGS (6)
  1. BRIVARACETAM [Suspect]
     Active Substance: BRIVARACETAM
     Indication: Partial seizures
     Dosage: 200 MILLIGRAM, QD (DAILY)
     Route: 065
  2. BRIVARACETAM [Suspect]
     Active Substance: BRIVARACETAM
     Dosage: 100 MILLIGRAM, BID
     Route: 065
  3. LACOSAMIDE [Suspect]
     Active Substance: LACOSAMIDE
     Indication: Partial seizures
     Dosage: UNK
     Route: 065
  4. LACOSAMIDE [Suspect]
     Active Substance: LACOSAMIDE
     Dosage: 200 MILLIGRAM, BID
     Route: 065
  5. PERAMPANEL [Suspect]
     Active Substance: PERAMPANEL
     Indication: Partial seizures
     Dosage: UNK
     Route: 065
  6. PERAMPANEL [Suspect]
     Active Substance: PERAMPANEL
     Dosage: 8 MILLIGRAM, OD
     Route: 065

REACTIONS (2)
  - Exposure during pregnancy [Unknown]
  - Exposure via breast milk [Unknown]
